FAERS Safety Report 6099571-1 (Version None)
Quarter: 2009Q1

REPORT INFORMATION
  Report Type: 
  Country: None (occurrence: None)
  Receive Date: 20090226
  Receipt Date: 20090212
  Transmission Date: 20090719
  Serious: Yes (Hospitalization)
  Sender: FDA-Public Use
  Company Number: DAV-AE-MTX-09-005

PATIENT
  Age: 32 Year
  Sex: Male

DRUGS (3)
  1. METHOTREXATE [Suspect]
     Indication: PAPILLOMA
     Dosage: 1 MG/KG
  2. ACYCLOVIR [Concomitant]
  3. INTERFERON [Concomitant]

REACTIONS (3)
  - BRONCHIAL OBSTRUCTION [None]
  - DISEASE RECURRENCE [None]
  - RESPIRATORY PAPILLOMA [None]
